FAERS Safety Report 16687066 (Version 3)
Quarter: 2019Q3

REPORT INFORMATION
  Report Type: Report from Study
  Country: None (occurrence: US)
  Receive Date: 20190809
  Receipt Date: 20190924
  Transmission Date: 20191004
  Serious: Yes (Other)
  Sender: FDA-Public Use
  Company Number: US-ABBVIE-19K-163-2879601-00

PATIENT
  Age: 60 Year
  Sex: Female

DRUGS (1)
  1. HUMIRA [Suspect]
     Active Substance: ADALIMUMAB
     Indication: RHEUMATOID ARTHRITIS
     Route: 058

REACTIONS (14)
  - Hernia [Unknown]
  - Pharyngo-oesophageal diverticulum [Unknown]
  - Gastrooesophageal reflux disease [Unknown]
  - Vomiting [Unknown]
  - Oesophageal disorder [Unknown]
  - Upper gastrointestinal haemorrhage [Unknown]
  - Anxiety [Unknown]
  - Road traffic accident [Unknown]
  - Laryngitis [Unknown]
  - Small intestine carcinoma [Unknown]
  - Dyskinesia oesophageal [Unknown]
  - Upper respiratory tract congestion [Unknown]
  - Faecaloma [Unknown]
  - Large intestine polyp [Unknown]

NARRATIVE: CASE EVENT DATE: 201906
